FAERS Safety Report 7109882-6 (Version None)
Quarter: 2010Q4

REPORT INFORMATION
  Report Type: 
  Country: None (occurrence: None)
  Receive Date: 20101116
  Receipt Date: 20101116
  Transmission Date: 20110411
  Serious: Yes (Other)
  Sender: FDA-Public Use
  Company Number: None

PATIENT
  Age: 57 Year
  Sex: Female
  Weight: 83.9154 kg

DRUGS (1)
  1. EFUDEX [Suspect]
     Indication: SMEAR CERVIX ABNORMAL
     Dosage: 4 GRAMS 1 PER WEEK VAG (1 TIME CAUSED TOXICITY)
     Route: 067

REACTIONS (4)
  - DRUG TOXICITY [None]
  - FATIGUE [None]
  - OFF LABEL USE [None]
  - PAIN [None]
